FAERS Safety Report 8249717-1 (Version None)
Quarter: 2012Q2

REPORT INFORMATION
  Report Type: 
  Country: None (occurrence: None)
  Receive Date: 20120402
  Receipt Date: 20120326
  Transmission Date: 20120825
  Serious: Yes (Hospitalization)
  Sender: FDA-Public Use
  Company Number: CA-BRISTOL-MYERS SQUIBB COMPANY-16485195

PATIENT
  Age: 60 Year
  Sex: Female

DRUGS (2)
  1. DULOXETINE HYDROCHLORIDE [Suspect]
     Indication: MAJOR DEPRESSION
  2. ABILIFY [Suspect]
     Indication: MAJOR DEPRESSION
     Dosage: INITIALLY GIVEN 20MG THEN INCREASED TO 30MG
     Route: 048

REACTIONS (1)
  - MANIA [None]
